FAERS Safety Report 14763628 (Version 1)
Quarter: 2018Q2

REPORT INFORMATION
  Report Type: Spontaneous
  Country: US (occurrence: US)
  Receive Date: 20180416
  Receipt Date: 20180416
  Transmission Date: 20180711
  Serious: Yes (Other)
  Sender: FDA-Public Use
  Company Number: US-JNJFOC-20180405444

PATIENT
  Sex: Female
  Weight: 40.82 kg

DRUGS (1)
  1. DARZALEX [Suspect]
     Active Substance: DARATUMUMAB
     Indication: PLASMA CELL MYELOMA
     Route: 042
     Dates: start: 201610

REACTIONS (4)
  - Nuclear magnetic resonance imaging abnormal [Unknown]
  - Tremor [Unknown]
  - Weight increased [Unknown]
  - Dyskinesia [Unknown]
